FAERS Safety Report 6444358-0 (Version None)
Quarter: 2009Q4

REPORT INFORMATION
  Report Type: 
  Country: None (occurrence: None)
  Receive Date: 20091118
  Receipt Date: 20091113
  Transmission Date: 20100525
  Serious: Yes (Other)
  Sender: FDA-Public Use
  Company Number: AR-BRISTOL-MYERS SQUIBB COMPANY-14751002

PATIENT
  Age: 62 Year
  Sex: Female

DRUGS (9)
  1. BLINDED: APIXABAN [Suspect]
     Indication: THROMBOSIS PROPHYLAXIS
     Dosage: TABLETS 2 NUMBERS
     Route: 048
     Dates: start: 20090604, end: 20090704
  2. BLINDED: ENOXAPARIN [Suspect]
     Indication: THROMBOSIS PROPHYLAXIS
     Dosage: INJECTION  1 NUMBER
     Route: 058
     Dates: start: 20090604, end: 20090609
  3. BLINDED: PLACEBO [Suspect]
     Indication: THROMBOSIS PROPHYLAXIS
     Dosage: WITH APIXABAN:04JUN09-04JUL09 (PO) WITH ENOXAPARIN:04JUN09-09JUN09(SC)
     Dates: start: 20090604, end: 20090101
  4. METFORMIN HCL [Suspect]
     Dosage: 2006-03JUN09 05JUN09-CONT
     Dates: start: 20060101
  5. LEVOFLOXACIN [Suspect]
     Dates: start: 20090610
  6. LOSARTAN POTASSIUM [Concomitant]
     Dosage: 2005-03JUN09 05JUN09-CONT
     Dates: start: 20050101
  7. ATENOLOL [Concomitant]
     Dosage: 2005-03JUN09 05JUN09-CONT
     Dates: start: 20050101
  8. GLIBENCLAMIDE [Concomitant]
     Dosage: 2006-03JUN09 05JUN09-CONT
     Dates: start: 20060101
  9. ALPRAZOLAM [Concomitant]
     Dates: start: 20060101

REACTIONS (1)
  - HEPATITIS TOXIC [None]
